FAERS Safety Report 5253769-0 (Version None)
Quarter: 2007Q1

REPORT INFORMATION
  Report Type: 
  Country: None (occurrence: None)
  Receive Date: 20070220
  Receipt Date: 20070208
  Transmission Date: 20070707
  Serious: Yes (Life-Threatening, Other)
  Sender: FDA-Public Use
  Company Number: AECAN200700033

PATIENT
  Age: 74 Year
  Sex: Female

DRUGS (13)
  1. GAMUNEX [Suspect]
     Indication: PEMPHIGOID
     Dosage: 105 GM; QD; IV
     Route: 042
     Dates: start: 20070205, end: 20070207
  2. GAMUNEX [Suspect]
  3. PREDNISONE (CON.) [Concomitant]
  4. CYCLOPHOPHAMIDE (CON.) [Concomitant]
  5. ZOPICLONE (CON.) [Concomitant]
  6. DIDROCAL (CON.) [Concomitant]
  7. ATIVAN (CON.) [Concomitant]
  8. ATENOLOL (CON.) [Concomitant]
  9. NORVASC /00972401/ (CON.) [Concomitant]
  10. DIOVAN /01319601/ (CON.) [Concomitant]
  11. BECLOMETHASONE (CON.) [Concomitant]
  12. NYSTATIN (CON.) [Concomitant]
  13. QUININE (CON.) [Concomitant]

REACTIONS (1)
  - CEREBROVASCULAR ACCIDENT [None]
